FAERS Safety Report 8017304-6 (Version None)
Quarter: 2012Q1

REPORT INFORMATION
  Report Type: 
  Country: None (occurrence: None)
  Receive Date: 20120102
  Receipt Date: 20111230
  Transmission Date: 20120608
  Serious: Yes (Hospitalization, Other)
  Sender: FDA-Public Use
  Company Number: PHEH2010US03420

PATIENT
  Sex: Female
  Weight: 78.458 kg

DRUGS (56)
  1. ARIMIDEX [Concomitant]
     Indication: BREAST CANCER
     Dosage: 1 DF, QD
     Route: 048
  2. CLINDAMYCIN [Concomitant]
  3. DURAGESIC-100 [Concomitant]
     Dosage: 2 MG, PRN
  4. ASMANEX TWISTHALER [Concomitant]
  5. TESTOSTERONE [Concomitant]
  6. ULTRACET [Concomitant]
  7. VICODIN [Concomitant]
     Dosage: 1 DF, PRN
  8. ACEPHEN [Concomitant]
     Dosage: 1 DF, QD
  9. DILAUDID [Concomitant]
  10. LOTENSIN [Concomitant]
     Dosage: 10 MG, UNK
     Route: 048
  11. ADRIAMYCIN PFS [Concomitant]
  12. WELLBUTRIN [Concomitant]
     Dosage: 150 MG, BID
     Route: 048
  13. FLUOXETINE [Concomitant]
     Dosage: 40 MG, QD
  14. PROVERA [Concomitant]
  15. DIOVAN [Concomitant]
  16. OXYCODONE HCL [Concomitant]
  17. OXYCONTIN [Concomitant]
     Dosage: 80 MG, PRN
  18. PREDNISONE [Concomitant]
     Dosage: 80 MG, QD
  19. MORPHINE [Concomitant]
  20. FENTANYL [Concomitant]
  21. SCOPOLAMINE [Concomitant]
     Dosage: 105 MG, EVERY 72 HRS
  22. CALCIUM WITH VITAMIN D [Concomitant]
  23. ADVAIR DISKUS 100/50 [Concomitant]
  24. CLONIDINE [Concomitant]
  25. LASIX [Concomitant]
  26. CYTOXAN [Concomitant]
  27. PROTONIX [Concomitant]
  28. LEXAPRO [Concomitant]
  29. AREDIA [Suspect]
     Indication: METASTASES TO BONE
     Dosage: 90 MG
     Route: 042
     Dates: start: 20030402
  30. BELLERGAL [Concomitant]
     Dosage: 1 DF, QD
     Route: 048
  31. NAXIDIN [Concomitant]
  32. IBUPROFEN (ADVIL) [Concomitant]
  33. PRILOSEC [Concomitant]
     Dosage: 20 MG, QD
     Route: 048
  34. FIBERCON (POLYCARBOPHIL CALCIUM) [Concomitant]
  35. PHENERGAN [Concomitant]
     Dosage: 50 MG, BID
  36. WELLBUTRIN [Concomitant]
  37. COMBIPATCH [Concomitant]
  38. ZOMETA [Suspect]
     Indication: BREAST CANCER METASTATIC
  39. PAXIL [Concomitant]
  40. SENOKOT [Concomitant]
     Indication: CONSTIPATION
  41. ANTACIDS [Concomitant]
  42. MAXZIDE [Concomitant]
     Dosage: 25 MG, DAILY
  43. ASPIRIN [Concomitant]
  44. HYZAAR [Concomitant]
  45. LISINOPRIL AND HYDROCHLOROTHIAZIDE [Concomitant]
  46. AREDIA [Suspect]
     Indication: BREAST CANCER METASTATIC
     Dosage: 90 MG
     Route: 042
     Dates: start: 20030305, end: 20060701
  47. EFFEXOR [Concomitant]
  48. PROZAC [Concomitant]
     Dosage: 1 DF, PRN
  49. PHENERGAN [Concomitant]
  50. SOMA [Concomitant]
     Indication: MUSCLE SPASMS
     Dosage: 350 MG, TID
     Route: 048
  51. CLEOCIN HYDROCHLORIDE [Concomitant]
  52. PROVENTIL [Concomitant]
  53. PREVACID [Concomitant]
  54. NAPROXEN (ALEVE) [Concomitant]
  55. AZITHROMYCIN [Concomitant]
  56. ALBUTEROL SULFATE [Concomitant]

REACTIONS (93)
  - DISABILITY [None]
  - OSTEONECROSIS [None]
  - RIB FRACTURE [None]
  - BONE PAIN [None]
  - HYDRONEPHROSIS [None]
  - HOT FLUSH [None]
  - CHEST PAIN [None]
  - DIVERTICULUM [None]
  - INFECTION [None]
  - LUNG NEOPLASM [None]
  - PYELOCALIECTASIS [None]
  - FALL [None]
  - DIPLOPIA [None]
  - SCOLIOSIS [None]
  - KYPHOSIS [None]
  - BARRETT'S OESOPHAGUS [None]
  - MUSCLE STRAIN [None]
  - TOOTH LOSS [None]
  - FLANK PAIN [None]
  - BLADDER NEOPLASM [None]
  - ILEUS [None]
  - TOOTH DEPOSIT [None]
  - BONE LESION [None]
  - BACK PAIN [None]
  - GAIT DISTURBANCE [None]
  - BREATHING-RELATED SLEEP DISORDER [None]
  - BRUXISM [None]
  - GINGIVAL EROSION [None]
  - DENTAL PLAQUE [None]
  - OSTEOARTHRITIS [None]
  - ARTHRITIS [None]
  - WHEELCHAIR USER [None]
  - STAPHYLOCOCCAL INFECTION [None]
  - ROAD TRAFFIC ACCIDENT [None]
  - MENISCUS LESION [None]
  - DYSGEUSIA [None]
  - BURSITIS [None]
  - CHRONIC OBSTRUCTIVE PULMONARY DISEASE [None]
  - DRUG HYPERSENSITIVITY [None]
  - DIZZINESS [None]
  - ANHEDONIA [None]
  - PERIODONTAL DISEASE [None]
  - EMPHYSEMA [None]
  - URINARY TRACT INFECTION [None]
  - IRON DEFICIENCY ANAEMIA [None]
  - RENAL CYST [None]
  - OSTEOPOROSIS [None]
  - JOINT EFFUSION [None]
  - OSTEONECROSIS OF JAW [None]
  - HIATUS HERNIA [None]
  - DYSPNOEA [None]
  - VERTEBRAL WEDGING [None]
  - INTERVERTEBRAL DISC PROTRUSION [None]
  - COLONIC POLYP [None]
  - DEVICE RELATED INFECTION [None]
  - INJURY [None]
  - PAIN [None]
  - ANXIETY [None]
  - METASTASES TO SPINE [None]
  - BRONCHITIS [None]
  - LIPOMA [None]
  - LIGAMENT SPRAIN [None]
  - HYPERCALCAEMIA [None]
  - PATHOLOGICAL FRACTURE [None]
  - CHILLS [None]
  - THORACIC VERTEBRAL FRACTURE [None]
  - INTERVERTEBRAL DISC SPACE NARROWING [None]
  - DERMAL CYST [None]
  - TOOTH FRACTURE [None]
  - METASTASES TO BONE [None]
  - SPINAL FRACTURE [None]
  - PELVI-URETERIC OBSTRUCTION [None]
  - LYMPHADENOPATHY [None]
  - VOMITING [None]
  - DIARRHOEA [None]
  - DEEP VEIN THROMBOSIS [None]
  - INTERVERTEBRAL DISC DEGENERATION [None]
  - MELANOCYTIC NAEVUS [None]
  - GINGIVAL OEDEMA [None]
  - DENTAL CARIES [None]
  - TOOTH ABSCESS [None]
  - ORAL PAIN [None]
  - SWELLING FACE [None]
  - BONE DISORDER [None]
  - BREAST CANCER RECURRENT [None]
  - HAEMATURIA [None]
  - CONTUSION [None]
  - GASTROINTESTINAL HAEMORRHAGE [None]
  - OEDEMA PERIPHERAL [None]
  - PROTHROMBIN TIME PROLONGED [None]
  - NASAL CONGESTION [None]
  - DYSURIA [None]
  - SKIN LESION [None]
